FAERS Safety Report 22104596 (Version 2)
Quarter: 2023Q1

REPORT INFORMATION
  Report Type: Spontaneous
  Country: CZ (occurrence: CZ)
  Receive Date: 20230316
  Receipt Date: 20230329
  Transmission Date: 20230417
  Serious: Yes (Hospitalization)
  Sender: FDA-Public Use
  Company Number: CZ-BRISTOL-MYERS SQUIBB COMPANY-2023-029220

PATIENT
  Age: 71 Year
  Sex: Female

DRUGS (11)
  1. PACLITAXEL [Suspect]
     Active Substance: PACLITAXEL
     Indication: Squamous cell carcinoma of lung
     Dosage: UNK
     Route: 065
     Dates: start: 20210302
  2. PACLITAXEL [Suspect]
     Active Substance: PACLITAXEL
     Dosage: UNK
     Route: 065
     Dates: start: 202203
  3. YERVOY [Suspect]
     Active Substance: IPILIMUMAB
     Indication: Squamous cell carcinoma of lung
     Dosage: UNK
     Route: 065
     Dates: start: 20210302
  4. YERVOY [Suspect]
     Active Substance: IPILIMUMAB
     Dosage: UNK
     Route: 065
     Dates: start: 202203
  5. YERVOY [Suspect]
     Active Substance: IPILIMUMAB
     Dosage: UNK, LAST 7TH CYCLE
     Route: 065
     Dates: start: 202211
  6. OPDIVO [Suspect]
     Active Substance: NIVOLUMAB
     Indication: Squamous cell carcinoma of lung
     Dosage: DOSE :UNAVAILABLE, FREQUENCY: UNAVAILABLE
     Route: 065
     Dates: start: 20210302
  7. OPDIVO [Suspect]
     Active Substance: NIVOLUMAB
     Dosage: DOSE :UNAVAILABLE, FREQUENCY: UNAVAILABLE
     Route: 065
     Dates: start: 202203
  8. OPDIVO [Suspect]
     Active Substance: NIVOLUMAB
     Dosage: UNK, LAST 7TH CYCLE
     Route: 065
     Dates: start: 202211
  9. CARBOPLATIN [Suspect]
     Active Substance: CARBOPLATIN
     Indication: Squamous cell carcinoma of lung
     Dosage: UNK
     Route: 065
     Dates: start: 20210302
  10. CARBOPLATIN [Suspect]
     Active Substance: CARBOPLATIN
     Dosage: UNK
     Route: 065
     Dates: start: 202203
  11. METOPROLOL [Concomitant]
     Active Substance: METOPROLOL
     Indication: Product used for unknown indication
     Dosage: 50 MILLIGRAM, BID
     Route: 065

REACTIONS (3)
  - Autoimmune dermatitis [Unknown]
  - Lichen planus [Recovered/Resolved]
  - Weight increased [Unknown]

NARRATIVE: CASE EVENT DATE: 20220901
